FAERS Safety Report 8719293 (Version 3)
Quarter: 2012Q4

REPORT INFORMATION
  Report Type: 
  Country: US (occurrence: US)
  Receive Date: 20120813
  Receipt Date: 20121008
  Transmission Date: 20130627
  Serious: No
  Sender: FDA-Public Use
  Company Number: US-PFIZER INC-2012192366

PATIENT
  Age: 55 Year
  Sex: Male
  Weight: 95.24 kg

DRUGS (17)
  1. VIAGRA [Suspect]
     Indication: ERECTILE DYSFUNCTION
     Dosage: 50 mg, 1x/day
     Route: 048
     Dates: start: 20120804, end: 20120804
  2. VIAGRA [Suspect]
     Dosage: 50 mg, as needed
     Route: 048
     Dates: start: 20120907
  3. KLONOPIN [Concomitant]
     Indication: BIPOLAR DISORDER
     Dosage: UNK
  4. INVEGA SUSTENNA [Concomitant]
     Indication: BIPOLAR DISORDER
     Dosage: 150 mg, every four weeks
  5. INVEGA SUSTENNA [Concomitant]
     Indication: HALLUCINATION
     Dosage: UNK
  6. INVEGA SUSTENNA [Concomitant]
     Indication: DELUSION
  7. TRAZODONE [Concomitant]
     Indication: BIPOLAR DISORDER
     Dosage: 100 mg, daily at bedtime
  8. TRAZODONE [Concomitant]
     Indication: SLEEP DISORDER
     Dosage: 100 mg, 1x/day
  9. ABILIFY [Concomitant]
     Indication: BIPOLAR DISORDER
     Dosage: 15 mg, 1x/day
  10. DEPAKOTE [Concomitant]
     Indication: BIPOLAR DISORDER
     Dosage: four capsules of 250 mg in morning and 5 capsules of 250 mg at bedtime
  11. DEPAKOTE [Concomitant]
     Indication: AFFECTIVE DISORDER
  12. CLONAZEPAM [Concomitant]
     Indication: SLEEP DISORDER
     Dosage: 1 mg, 2x/day
  13. SERTRALINE HYDROCHLORIDE [Concomitant]
     Indication: AFFECTIVE DISORDER
     Dosage: 100 mg, daily
  14. DIVALPROEX [Concomitant]
     Dosage: four capsules of 250mg in the morning and five capsules of 250mg at night
  15. MIDODRINE [Concomitant]
     Dosage: 5 mg, 2x/day
  16. FLUDROCORTISONE [Concomitant]
     Dosage: 0.1 mg, 2x/day
  17. SERTRALINE [Concomitant]
     Dosage: 100 mg, 1x/day

REACTIONS (1)
  - Drug ineffective [Unknown]
